FAERS Safety Report 6712137-2 (Version None)
Quarter: 2010Q2

REPORT INFORMATION
  Report Type: 
  Country: None (occurrence: None)
  Receive Date: 20100505
  Receipt Date: 20100422
  Transmission Date: 20101027
  Serious: Yes (Other)
  Sender: FDA-Public Use
  Company Number: US-ELI_LILLY_AND_COMPANY-US201003001911

PATIENT
  Sex: Female

DRUGS (6)
  1. FORTEO [Suspect]
     Indication: OSTEOPOROSIS
     Dosage: 20 UG, DAILY (1/D)
     Dates: start: 20100208
  2. INSULIN [Concomitant]
  3. GABAPENTIN [Concomitant]
     Dosage: 800 MG, 2/D
  4. AMLODIPINE [Concomitant]
     Dosage: 2.5 MG, DAILY (1/D)
  5. SYNTHROID [Concomitant]
     Dosage: 0.137 MG, UNKNOWN
  6. VALIUM [Concomitant]
     Dosage: UNK, EACH EVENING

REACTIONS (7)
  - BLOOD GLUCOSE DECREASED [None]
  - BLOOD GLUCOSE INCREASED [None]
  - COUGH [None]
  - EAR PAIN [None]
  - IMPAIRED HEALING [None]
  - OROPHARYNGEAL PAIN [None]
  - STRESS [None]
